FAERS Safety Report 8353410-4 (Version None)
Quarter: 2012Q2

REPORT INFORMATION
  Report Type: 
  Country: None (occurrence: None)
  Receive Date: 20120511
  Receipt Date: 20120504
  Transmission Date: 20120825
  Serious: Yes (Other)
  Sender: FDA-Public Use
  Company Number: US-BAYER-2012-044217

PATIENT
  Sex: Female

DRUGS (2)
  1. MIRENA [Suspect]
     Indication: CONTRACEPTION
     Dosage: 20 MCG/24HR, CONT
     Dates: start: 20110805, end: 20120502
  2. MIRENA [Suspect]
     Indication: MENORRHAGIA

REACTIONS (4)
  - GENITAL HAEMORRHAGE [None]
  - MENORRHAGIA [None]
  - ABDOMINAL DISTENSION [None]
  - DEVICE BREAKAGE [None]
